FAERS Safety Report 7450374-2 (Version None)
Quarter: 2011Q2

REPORT INFORMATION
  Report Type: 
  Country: None (occurrence: None)
  Receive Date: 20110502
  Receipt Date: 20110404
  Transmission Date: 20111010
  Serious: No
  Sender: FDA-Public Use
  Company Number: US-JNJFOC-20110107592

PATIENT
  Age: 17 Year
  Sex: Female
  Weight: 92.53 kg

DRUGS (8)
  1. INVEGA SUSTENNA [Suspect]
     Indication: SCHIZOAFFECTIVE DISORDER
     Route: 030
  2. TOPIRAMATE [Concomitant]
     Indication: ILL-DEFINED DISORDER
     Route: 065
  3. METFORMIN [Concomitant]
     Indication: ILL-DEFINED DISORDER
     Route: 065
  4. INVEGA SUSTENNA [Suspect]
     Route: 030
  5. RISPERDAL [Concomitant]
     Indication: ILL-DEFINED DISORDER
     Route: 048
  6. RISPERDAL [Concomitant]
     Route: 048
  7. RISPERDAL CONSTA [Concomitant]
     Indication: SCHIZOAFFECTIVE DISORDER
     Route: 030
  8. CLONIDINE [Concomitant]
     Indication: ILL-DEFINED DISORDER
     Route: 065

REACTIONS (1)
  - INAPPROPRIATE SCHEDULE OF DRUG ADMINISTRATION [None]
